FAERS Safety Report 6983962-8 (Version None)
Quarter: 2010Q3

REPORT INFORMATION
  Report Type: 
  Country: None (occurrence: None)
  Receive Date: 20100915
  Receipt Date: 20090409
  Transmission Date: 20110219
  Serious: Yes (Other)
  Sender: FDA-Public Use
  Company Number: US-WYE-H08926109

PATIENT
  Sex: Female

DRUGS (2)
  1. ADVIL LIQUI-GELS [Suspect]
     Dosage: UNKNOWN DOSE X 1
     Route: 048
  2. ADVIL LIQUI-GELS [Suspect]
     Dosage: TWO LIQUI-GELS X 1
     Route: 048

REACTIONS (2)
  - ANAPHYLACTIC SHOCK [None]
  - NAUSEA [None]
